FAERS Safety Report 8066030-6 (Version None)
Quarter: 2012Q1

REPORT INFORMATION
  Report Type: 
  Country: None (occurrence: None)
  Receive Date: 20120124
  Receipt Date: 20120113
  Transmission Date: 20120608
  Serious: Yes (Other)
  Sender: FDA-Public Use
  Company Number: DE-NOVOPROD-334147

PATIENT
  Age: 58 Year
  Sex: Female
  Weight: 95 kg

DRUGS (2)
  1. ACTRAPID [Concomitant]
     Indication: TYPE 2 DIABETES MELLITUS
     Dosage: 65 IU, QD
     Dates: start: 20040101
  2. LEVEMIR [Suspect]
     Indication: TYPE 2 DIABETES MELLITUS
     Dosage: 20 IU, QD
     Route: 058
     Dates: start: 20110711, end: 20110808

REACTIONS (2)
  - RASH [None]
  - ALOPECIA [None]
